FAERS Safety Report 5530255-1 (Version None)
Quarter: 2007Q4

REPORT INFORMATION
  Report Type: 
  Country: None (occurrence: None)
  Receive Date: 20071127
  Receipt Date: 20071127
  Transmission Date: 20080405
  Serious: Yes (Hospitalization)
  Sender: FDA-Public Use
  Company Number: None

PATIENT
  Age: 87 Year
  Sex: Female
  Weight: 82 kg

DRUGS (2)
  1. NAMENDA [Suspect]
     Indication: DEMENTIA ALZHEIMER'S TYPE
     Dosage: 7.5MG TWICE DAILY PO
     Route: 048
     Dates: start: 20060620, end: 20071028
  2. TRIMPEX [Suspect]
     Indication: PROPHYLAXIS URINARY TRACT INFECTION
     Dosage: 100MG DAILY PO
     Route: 048
     Dates: start: 20070801, end: 20071028

REACTIONS (2)
  - DELIRIUM [None]
  - MYOCLONUS [None]
